FAERS Safety Report 6930029-0 (Version None)
Quarter: 2010Q3

REPORT INFORMATION
  Report Type: 
  Country: None (occurrence: None)
  Receive Date: 20100813
  Receipt Date: 20100730
  Transmission Date: 20110219
  Serious: Yes (Other)
  Sender: FDA-Public Use
  Company Number: 7012796

PATIENT
  Sex: Female

DRUGS (1)
  1. REBIF [Suspect]
     Dosage: NOT REPORTED
     Dates: start: 20071101

REACTIONS (1)
  - HAEMOLYTIC URAEMIC SYNDROME [None]
